FAERS Safety Report 6917528-2 (Version None)
Quarter: 2010Q3

REPORT INFORMATION
  Report Type: 
  Country: None (occurrence: None)
  Receive Date: 20100805
  Receipt Date: 20100727
  Transmission Date: 20110219
  Serious: Yes (Hospitalization)
  Sender: FDA-Public Use
  Company Number: 015131

PATIENT
  Sex: Male
  Weight: 69.6 kg

DRUGS (10)
  1. CERTOLIZUMAB PEGOL (CERTOLIZUMAB PEGOL) [Suspect]
     Indication: RHEUMATOID ARTHRITIS
     Dosage: SEE IMAGE
     Route: 058
     Dates: start: 20050810, end: 20060726
  2. CERTOLIZUMAB PEGOL (CERTOLIZUMAB PEGOL) [Suspect]
     Indication: RHEUMATOID ARTHRITIS
     Dosage: SEE IMAGE
     Route: 058
     Dates: start: 20060809, end: 20071128
  3. CERTOLIZUMAB PEGOL (CERTOLIZUMAB PEGOL) [Suspect]
     Indication: RHEUMATOID ARTHRITIS
     Dosage: SEE IMAGE
     Route: 058
     Dates: start: 20071212, end: 20090609
  4. METHOTREXATE [Concomitant]
  5. FOLIC ACID [Concomitant]
  6. VOLTAREN [Concomitant]
  7. ACETAMINOPHEN [Concomitant]
  8. AMITRIPTYLINE HYDROCHLORIDE [Concomitant]
  9. CALCIUM SANDOZ /00751501/ [Concomitant]
  10. ETIDRONATE DISODIUM [Concomitant]

REACTIONS (10)
  - BONE DENSITY DECREASED [None]
  - CELLULITIS [None]
  - FIBULA FRACTURE [None]
  - NECK PAIN [None]
  - OROPHARYNGEAL PAIN [None]
  - PULMONARY MASS [None]
  - SINUSITIS [None]
  - TIBIA FRACTURE [None]
  - TOOTH ABSCESS [None]
  - WOUND INFECTION [None]
